FAERS Safety Report 24393263 (Version 4)
Quarter: 2024Q4

REPORT INFORMATION
  Report Type: Spontaneous
  Country: US (occurrence: US)
  Receive Date: 20241003
  Receipt Date: 20241119
  Transmission Date: 20250115
  Serious: No
  Sender: PFIZER
  Company Number: US-PFIZER INC-202400201663

PATIENT
  Age: 61 Year
  Sex: Male
  Weight: 89.5 kg

DRUGS (2)
  1. ADCETRIS [Suspect]
     Active Substance: BRENTUXIMAB VEDOTIN
     Indication: Cutaneous T-cell lymphoma stage IV
     Dosage: 160 MG, EVERY 3 WEEKS
     Route: 041
     Dates: start: 202406, end: 2024
  2. ADCETRIS [Suspect]
     Active Substance: BRENTUXIMAB VEDOTIN
     Dosage: 140 MG, EVERY 3 WEEKS
     Route: 041
     Dates: start: 202409

REACTIONS (2)
  - Weight decreased [Unknown]
  - Off label use [Unknown]

NARRATIVE: CASE EVENT DATE: 20240601
